FAERS Safety Report 8812376 (Version 2)
Quarter: 2012Q4

REPORT INFORMATION
  Report Type: 
  Country: US (occurrence: US)
  Receive Date: 20120927
  Receipt Date: 20121029
  Transmission Date: 20130627
  Serious: Yes (Hospitalization)
  Sender: FDA-Public Use
  Company Number: US-ALEXION PHARMACEUTICALS INC.-A201201468

PATIENT
  Age: 59 None
  Sex: Female

DRUGS (6)
  1. SOLIRIS 300MG [Suspect]
     Indication: PAROXYSMAL NOCTURNAL HAEMOGLOBINURIA
     Dosage: 900 mg, q2w
     Route: 042
     Dates: start: 20100506
  2. ASPIRIN [Concomitant]
     Dosage: 81 mg, qd
  3. FOSTEUM [Concomitant]
     Dosage: 1 tab, bid
  4. TRIEST [Concomitant]
     Indication: OESTROGEN REPLACEMENT THERAPY
     Dosage: UNK, qd
  5. XANAX [Concomitant]
     Dosage: 0.25 mg, prn
  6. CENTRUM SILVER [Concomitant]
     Dosage: UNK, qd

REACTIONS (7)
  - Meningitis aseptic [Recovered/Resolved]
  - Headache [Recovered/Resolved]
  - Blood lactate dehydrogenase increased [Unknown]
  - Proteinuria [Unknown]
  - Mean cell volume increased [Unknown]
  - Mean cell haemoglobin concentration increased [Unknown]
  - Reticulocyte count increased [Unknown]
